FAERS Safety Report 7725776-7 (Version None)
Quarter: 2011Q3

REPORT INFORMATION
  Report Type: 
  Country: None (occurrence: None)
  Receive Date: 20110902
  Receipt Date: 20110823
  Transmission Date: 20111222
  Serious: Yes (Other)
  Sender: FDA-Public Use
  Company Number: GB-UCBSA-040161

PATIENT
  Sex: Female

DRUGS (2)
  1. VIMPAT [Suspect]
     Dosage: 2 X 200MG
  2. KEPPRA [Suspect]
     Dosage: 1000MG IN THE MORNING, 1500MG IN THE EVENING

REACTIONS (5)
  - DRUG INEFFECTIVE [None]
  - MOROSE [None]
  - CONVULSION [None]
  - DRUG LEVEL INCREASED [None]
  - AGGRESSION [None]
